FAERS Safety Report 19104803 (Version 1)
Quarter: 2021Q2

REPORT INFORMATION
  Report Type: Spontaneous
  Country: IT (occurrence: IT)
  Receive Date: 20210408
  Receipt Date: 20210408
  Transmission Date: 20210717
  Serious: Yes (Other)
  Sender: FDA-Public Use
  Company Number: IT-LUPIN PHARMACEUTICALS INC.-2021-04248

PATIENT
  Age: 7 Decade
  Sex: Female

DRUGS (8)
  1. GEMCITABINE. [Concomitant]
     Active Substance: GEMCITABINE
     Indication: LUNG ADENOCARCINOMA
     Dosage: UNK RECEIVED 4 COURSES
     Route: 065
  2. METHYLPREDNISOLONE. [Concomitant]
     Active Substance: METHYLPREDNISOLONE
     Indication: SYMPTOMATIC TREATMENT
     Dosage: 40 MILLIGRAM, BID (TAPERED)
     Route: 065
     Dates: start: 202004
  3. HYDROXYCHLOROQUINE [Suspect]
     Active Substance: HYDROXYCHLOROQUINE
     Dosage: 200 MILLIGRAM, BID (200 MILLIGRAM)
     Route: 065
     Dates: start: 202004, end: 202004
  4. HYDROXYCHLOROQUINE [Suspect]
     Active Substance: HYDROXYCHLOROQUINE
     Indication: ASYMPTOMATIC COVID-19
     Dosage: 400 MILLIGRAM, BID (400 MILLIGRAM FOR 24H)
     Route: 065
     Dates: start: 202004, end: 202004
  5. OSIMERTINIB. [Concomitant]
     Active Substance: OSIMERTINIB
     Indication: LUNG ADENOCARCINOMA
     Dosage: UNK
     Route: 065
     Dates: start: 2018
  6. CISPLATIN. [Concomitant]
     Active Substance: CISPLATIN
     Indication: LUNG ADENOCARCINOMA
     Dosage: UNK (RECEIVED 4 COURSES)
     Route: 065
  7. AZITHROMYCIN ANHYDROUS. [Suspect]
     Active Substance: AZITHROMYCIN ANHYDROUS
     Indication: ASYMPTOMATIC COVID-19
     Dosage: 500 MILLIGRAM, QD
     Route: 065
     Dates: start: 202004, end: 202004
  8. ENOXAPARIN [Suspect]
     Active Substance: ENOXAPARIN
     Indication: ASYMPTOMATIC COVID-19
     Dosage: UNK
     Route: 058
     Dates: start: 202004

REACTIONS (1)
  - Off label use [Unknown]

NARRATIVE: CASE EVENT DATE: 202004
